FAERS Safety Report 17301033 (Version 3)
Quarter: 2020Q1

REPORT INFORMATION
  Report Type: Spontaneous
  Country: JP (occurrence: JP)
  Receive Date: 20200122
  Receipt Date: 20200313
  Transmission Date: 20200409
  Serious: Yes (Other)
  Sender: FDA-Public Use
  Company Number: JP-JNJFOC-20200128220

PATIENT
  Age: 54 Year
  Sex: Male

DRUGS (13)
  1. REMICADE [Suspect]
     Active Substance: INFLIXIMAB
     Dosage: 360 MILLIGRAM, QD
     Route: 042
     Dates: start: 201809, end: 201809
  2. BIOFERMIN                          /07958301/ [Concomitant]
  3. PREDONINE [Concomitant]
     Active Substance: PREDNISOLONE
  4. PREDONINE [Concomitant]
     Active Substance: PREDNISOLONE
  5. PREDONINE [Concomitant]
     Active Substance: PREDNISOLONE
  6. REMICADE [Suspect]
     Active Substance: INFLIXIMAB
     Dosage: 360 MILLIGRAM, QD
     Route: 042
     Dates: start: 20181109, end: 20181109
  7. ASACOL [Concomitant]
     Active Substance: MESALAMINE
  8. PREDONINE [Concomitant]
     Active Substance: PREDNISOLONE
  9. PARIET [Concomitant]
     Active Substance: RABEPRAZOLE SODIUM
  10. PREDONINE [Concomitant]
     Active Substance: PREDNISOLONE
  11. REMICADE [Suspect]
     Active Substance: INFLIXIMAB
     Indication: COLITIS ULCERATIVE
     Dosage: 360 MILLIGRAM, QD
     Route: 042
     Dates: start: 20171222, end: 20181109
  12. REMICADE [Suspect]
     Active Substance: INFLIXIMAB
     Dosage: 360 MILLIGRAM, QD
     Route: 042
  13. IMURAN [Concomitant]
     Active Substance: AZATHIOPRINE

REACTIONS (6)
  - Dermatitis acneiform [Recovered/Resolved]
  - Cyst [Unknown]
  - Chest pain [Not Recovered/Not Resolved]
  - Skin ulcer [Recovered/Resolved]
  - SAPHO syndrome [Recovering/Resolving]
  - Pustule [Recovering/Resolving]

NARRATIVE: CASE EVENT DATE: 201809
